FAERS Safety Report 10820478 (Version 1)
Quarter: 2015Q1

REPORT INFORMATION
  Report Type: Spontaneous
  Country: US (occurrence: US)
  Receive Date: 20150218
  Receipt Date: 20150218
  Transmission Date: 20150721
  Serious: No
  Sender: FDA-Public Use
  Company Number: US-ABBVIE-14K-163-1297262-00

PATIENT
  Age: 45 Year
  Sex: Female
  Weight: 49.94 kg

DRUGS (2)
  1. HUMIRA [Suspect]
     Active Substance: ADALIMUMAB
     Indication: CROHN^S DISEASE
     Route: 058
     Dates: start: 2012
  2. COLESTIPOL [Concomitant]
     Active Substance: COLESTIPOL
     Indication: CROHN^S DISEASE

REACTIONS (2)
  - Sinusitis [Recovered/Resolved]
  - Secretion discharge [Recovered/Resolved]

NARRATIVE: CASE EVENT DATE: 201408
